FAERS Safety Report 19036083 (Version 1)
Quarter: 2021Q1

REPORT INFORMATION
  Report Type: Spontaneous
  Country: PL (occurrence: PL)
  Receive Date: 20210321
  Receipt Date: 20210321
  Transmission Date: 20210420
  Serious: Yes (Life-Threatening)
  Sender: FDA-Public Use
  Company Number: PL-TEVA-2021-PL-1891571

PATIENT
  Age: 70 Year
  Sex: Female

DRUGS (2)
  1. NAVELBINE [Suspect]
     Active Substance: VINORELBINE TARTRATE
     Indication: LUNG NEOPLASM MALIGNANT
     Dosage: 37.5 MG , EXP. 01.20;
     Route: 042
     Dates: start: 20200311, end: 20200311
  2. CISPLATIN. [Suspect]
     Active Substance: CISPLATIN
     Indication: LUNG NEOPLASM MALIGNANT
     Dosage: 112.5 MG , EXP. 01.22
     Route: 042
     Dates: start: 20200311, end: 20200311

REACTIONS (1)
  - Febrile neutropenia [Unknown]
